FAERS Safety Report 7238527-X (Version None)
Quarter: 2011Q1

REPORT INFORMATION
  Report Type: 
  Country: None (occurrence: None)
  Receive Date: 20110121
  Receipt Date: 20110117
  Transmission Date: 20110831
  Serious: Yes (Hospitalization)
  Sender: FDA-Public Use
  Company Number: US-JNJFOC-20100800339

PATIENT
  Sex: Female
  Weight: 47.63 kg

DRUGS (10)
  1. RELPAX [Concomitant]
     Indication: MIGRAINE
     Route: 048
  2. OXYCODONE [Concomitant]
     Indication: PAIN
     Dosage: AS NEEDED
     Route: 048
  3. KLONOPIN [Concomitant]
     Indication: ANXIETY
     Route: 048
  4. DURAGESIC-50 [Suspect]
     Dosage: 75 UG/HR+ 75 UG/HR, NDC: 50458-0093-05
     Route: 062
  5. ACYCLOVIR [Concomitant]
     Indication: ORAL HERPES
     Route: 048
  6. EFFEXOR [Concomitant]
     Indication: DEPRESSION
     Route: 048
  7. TRAMADOL [Concomitant]
     Indication: PAIN
     Dosage: 50 MG/2 EVERY 8 HOURS AS NEEDED
     Route: 048
  8. DURAGESIC-50 [Suspect]
     Indication: BACK PAIN
     Dosage: 75 UG/HR+ 75 UG/HR
     Route: 062
  9. TOPIRAMATE [Concomitant]
     Indication: MIGRAINE
     Route: 048
  10. TRAZODONE [Concomitant]
     Indication: SLEEP DISORDER
     Dosage: AT BED TIME
     Route: 048

REACTIONS (13)
  - BREAST DISORDER [None]
  - DERMATITIS CONTACT [None]
  - ABDOMINAL DISCOMFORT [None]
  - BLADDER PROLAPSE [None]
  - FLUID INTAKE REDUCED [None]
  - SWOLLEN TONGUE [None]
  - EATING DISORDER [None]
  - LYMPHADENOPATHY [None]
  - OSTEOPOROSIS [None]
  - VISUAL IMPAIRMENT [None]
  - PRODUCT ADHESION ISSUE [None]
  - DENTAL CARIES [None]
  - WRONG TECHNIQUE IN DRUG USAGE PROCESS [None]
